FAERS Safety Report 16779324 (Version 2)
Quarter: 2019Q4

REPORT INFORMATION
  Report Type: Spontaneous
  Country: US (occurrence: US)
  Receive Date: 20190906
  Receipt Date: 20191030
  Transmission Date: 20200122
  Serious: No
  Sender: FDA-Public Use
  Company Number: US-PFIZER INC-2019385938

PATIENT
  Age: 74 Year
  Sex: Male
  Weight: 72.56 kg

DRUGS (4)
  1. TAMSULOSIN HYDROCHLORIDE. [Concomitant]
     Active Substance: TAMSULOSIN HYDROCHLORIDE
     Dosage: 0.4 MG, UNK
     Dates: start: 20190422
  2. METHOTREXATE. [Concomitant]
     Active Substance: METHOTREXATE
     Dosage: 2.5 MG, UNK (8 ON WED)
     Dates: start: 2014
  3. XELJANZ [Suspect]
     Active Substance: TOFACITINIB CITRATE
     Indication: SCLERODERMA
     Dosage: 5 MG, 2X/DAY
     Dates: start: 20190904
  4. FINASTERIDE. [Concomitant]
     Active Substance: FINASTERIDE
     Dosage: 5 MG, UNK
     Dates: start: 20190520

REACTIONS (3)
  - Prostatic disorder [Recovered/Resolved]
  - Off label use [Unknown]
  - Product use in unapproved indication [Unknown]

NARRATIVE: CASE EVENT DATE: 201909
